FAERS Safety Report 12403693 (Version 17)
Quarter: 2017Q2

REPORT INFORMATION
  Report Type: Report from Study
  Country: CA (occurrence: CA)
  Receive Date: 20160525
  Receipt Date: 20170427
  Transmission Date: 20170830
  Serious: Yes (Death, Life-Threatening, Hospitalization)
  Sender: FDA-Public Use
  Company Number: CA-ROCHE-1760169

PATIENT
  Age: 59 Year
  Sex: Male
  Weight: 91 kg

DRUGS (40)
  1. OBINUTUZUMAB [Suspect]
     Active Substance: OBINUTUZUMAB
     Indication: CHRONIC LYMPHOCYTIC LEUKAEMIA REFRACTORY
     Dosage: C1D1: AT 11:45 18.75 MG AND ENDED AT 12:30; AT 12:40 WITH 81.25 MG ENDED AT 16:00.?FREQUENCY -  IN C
     Route: 042
     Dates: start: 20140702, end: 20140702
  2. BENDAMUSTINE [Suspect]
     Active Substance: BENDAMUSTINE
     Indication: CHRONIC LYMPHOCYTIC LEUKAEMIA REFRACTORY
     Dosage: SUBSEQUENT DOSES ON 02/JUL/2014 (C1D1), 03/JUL/2014 (C1D2), 29/JUL/2014 (C2D1), 30/JUL/2014 (C2D2),
     Route: 042
     Dates: start: 20140702, end: 20141203
  3. REACTINE (CANADA) [Concomitant]
     Active Substance: CETIRIZINE HYDROCHLORIDE
     Route: 048
     Dates: start: 20141104, end: 20160524
  4. SOLU-MEDROL [Concomitant]
     Active Substance: METHYLPREDNISOLONE SODIUM SUCCINATE
     Route: 042
     Dates: start: 20140703, end: 20140703
  5. SOLU-MEDROL [Concomitant]
     Active Substance: METHYLPREDNISOLONE SODIUM SUCCINATE
     Route: 042
     Dates: start: 20140708, end: 20140708
  6. AAS [Concomitant]
     Active Substance: ASPIRIN
     Route: 048
     Dates: start: 2009, end: 20160524
  7. DECADRON [Concomitant]
     Active Substance: DEXAMETHASONE
     Dosage: PRE BENDAMUSTINE
     Route: 042
     Dates: start: 20140702, end: 20141203
  8. POLYSPORIN CREAM [Concomitant]
     Route: 061
     Dates: start: 20140923, end: 20141007
  9. SERAX (CANADA) [Concomitant]
     Route: 048
     Dates: start: 20140728, end: 20160524
  10. EZETROL [Concomitant]
     Active Substance: EZETIMIBE
     Route: 048
     Dates: start: 2009, end: 20160524
  11. OBINUTUZUMAB [Suspect]
     Active Substance: OBINUTUZUMAB
     Dosage: C1D2: AT 11:55, 900 MG ENDED AT 16:20; AT 17:30, 900 MG ENDED AT 19:00.
     Route: 042
     Dates: start: 20140703, end: 20140703
  12. OBINUTUZUMAB [Suspect]
     Active Substance: OBINUTUZUMAB
     Dosage: SUBSEQUENT DOSE OF 1000 MG ON  08/JUL/2014 (C1D8), 15/JUL/2014 (C1D15), 29/JUL/2014 (C2D1), 09/SEP/2
     Route: 042
     Dates: end: 20141202
  13. SOLU-MEDROL [Concomitant]
     Active Substance: METHYLPREDNISOLONE SODIUM SUCCINATE
     Dosage: PRE OBINUTUZUMAB
     Route: 042
     Dates: start: 20140702, end: 20141202
  14. COLACE [Concomitant]
     Active Substance: DOCUSATE SODIUM
     Route: 048
     Dates: start: 20140707, end: 20160229
  15. INNOHEP [Concomitant]
     Active Substance: TINZAPARIN SODIUM
     Dosage: 3500 UNIT
     Route: 058
     Dates: start: 20141201, end: 20141231
  16. INNOHEP [Concomitant]
     Active Substance: TINZAPARIN SODIUM
     Dosage: 16000 UNITS
     Route: 058
     Dates: start: 20160517
  17. SENOKOT [Concomitant]
     Active Substance: SENNOSIDES
     Route: 048
     Dates: start: 20140707, end: 20160229
  18. CRESTOR [Concomitant]
     Active Substance: ROSUVASTATIN CALCIUM
     Route: 048
     Dates: start: 2009, end: 20160524
  19. ALLOPURINOL. [Concomitant]
     Active Substance: ALLOPURINOL
     Route: 048
     Dates: start: 20140708, end: 20140721
  20. DECADRON [Concomitant]
     Active Substance: DEXAMETHASONE
     Dosage: PRE BENDAMUSTINE
     Route: 042
     Dates: start: 20140702, end: 20141203
  21. DECADRON [Concomitant]
     Active Substance: DEXAMETHASONE
     Dosage: TWICE A DAY, DAY 3 OF BENDAMUSTINE
     Route: 048
     Dates: start: 20140731, end: 20141203
  22. ACETAMINOPHEN. [Concomitant]
     Active Substance: ACETAMINOPHEN
     Dosage: PRE OBINUTUZUMAB
     Route: 048
     Dates: start: 20140702, end: 20141202
  23. CLAVULIN [Concomitant]
     Active Substance: AMOXICILLIN\CLAVULANIC ACID
     Route: 045
     Dates: start: 20140923, end: 20141007
  24. TRAMACET [Concomitant]
     Active Substance: ACETAMINOPHEN\TRAMADOL
     Route: 048
     Dates: start: 20140920, end: 20140925
  25. BENADRYL [Concomitant]
     Active Substance: DIPHENHYDRAMINE HYDROCHLORIDE
     Dosage: PRE OBINUTUZUMAB
     Route: 042
     Dates: start: 20140702, end: 20141202
  26. FLOMAX [Concomitant]
     Active Substance: TAMSULOSIN HYDROCHLORIDE
     Route: 048
     Dates: start: 2014, end: 20160524
  27. PANTOLOC [Concomitant]
     Active Substance: PANTOPRAZOLE SODIUM
     Route: 048
     Dates: start: 20140702, end: 20141201
  28. DECADRON [Concomitant]
     Active Substance: DEXAMETHASONE
     Dosage: 12 HOURS PRE OBINUTUZUMAB
     Route: 048
     Dates: start: 20140701, end: 20140908
  29. ZOFRAN [Concomitant]
     Active Substance: ONDANSETRON HYDROCHLORIDE
     Dosage: PRE BENDAMUSTINE
     Route: 042
     Dates: start: 20140702, end: 20141203
  30. BENADRYL [Concomitant]
     Active Substance: DIPHENHYDRAMINE HYDROCHLORIDE
     Route: 042
     Dates: start: 20140703, end: 20140703
  31. VALSARTAN. [Concomitant]
     Active Substance: VALSARTAN
     Route: 048
     Dates: start: 2012, end: 20160524
  32. DECADRON [Concomitant]
     Active Substance: DEXAMETHASONE
     Dosage: AT SUPPER
     Route: 048
     Dates: start: 20140703, end: 20140703
  33. DECADRON [Concomitant]
     Active Substance: DEXAMETHASONE
     Dosage: AT SUPPER, THE DAY OF BENDAMUSTINE DAY 1-2
     Route: 048
     Dates: start: 20140729, end: 20141202
  34. VENTOLIN [Concomitant]
     Active Substance: ALBUTEROL SULFATE
     Route: 045
     Dates: start: 20140728, end: 20160524
  35. STEMETIL [Concomitant]
     Active Substance: PROCHLORPERAZINE MALEATE
     Route: 048
     Dates: start: 20140702, end: 20140815
  36. INNOHEP [Concomitant]
     Active Substance: TINZAPARIN SODIUM
     Dosage: 8000 UNITS
     Route: 065
     Dates: start: 20160510, end: 20160516
  37. ALLOPURINOL. [Concomitant]
     Active Substance: ALLOPURINOL
     Route: 048
     Dates: start: 20140701, end: 20140707
  38. DECADRON [Concomitant]
     Active Substance: DEXAMETHASONE
     Route: 048
     Dates: start: 20140704, end: 20140704
  39. FLOVENT [Concomitant]
     Active Substance: FLUTICASONE PROPIONATE
     Route: 045
     Dates: start: 20140728, end: 20140811
  40. INNOHEP [Concomitant]
     Active Substance: TINZAPARIN SODIUM
     Dosage: 3500 UNITS
     Route: 065
     Dates: start: 20160507, end: 20160509

REACTIONS (2)
  - Intestinal perforation [Not Recovered/Not Resolved]
  - Neoplasm malignant [Fatal]

NARRATIVE: CASE EVENT DATE: 20160406
